FAERS Safety Report 15286556 (Version 7)
Quarter: 2018Q4

REPORT INFORMATION
  Report Type: Spontaneous
  Country: US (occurrence: US)
  Receive Date: 20180816
  Receipt Date: 20181004
  Transmission Date: 20190204
  Serious: Yes (Hospitalization, Other)
  Sender: FDA-Public Use
  Company Number: US-ACTELION-A-US2018-177125

PATIENT
  Age: 44 Year
  Sex: Male
  Weight: 109.75 kg

DRUGS (4)
  1. VELETRI [Suspect]
     Active Substance: EPOPROSTENOL
     Dosage: 6 NG/KG, PER MIN
     Route: 042
  2. VELETRI [Suspect]
     Active Substance: EPOPROSTENOL
     Dosage: 7 NG/KG, UNK
     Route: 042
  3. OPSUMIT [Concomitant]
     Active Substance: MACITENTAN
     Indication: PULMONARY HYPERTENSION
     Route: 048
  4. VELETRI [Suspect]
     Active Substance: EPOPROSTENOL
     Indication: PULMONARY HYPERTENSION
     Dosage: 8 NG/KG, PER MIN
     Route: 042

REACTIONS (31)
  - Lung transplant [Unknown]
  - Flushing [Unknown]
  - Rash papular [Unknown]
  - Rash macular [Unknown]
  - Pain [Unknown]
  - Device dislocation [Unknown]
  - Decreased appetite [Unknown]
  - Toothache [Recovering/Resolving]
  - Asthenia [Unknown]
  - Arthralgia [Unknown]
  - Fatigue [Unknown]
  - Ocular discomfort [Unknown]
  - Dyspnoea exertional [Unknown]
  - Photosensitivity reaction [Unknown]
  - Oral discomfort [Unknown]
  - Dyspnoea [Unknown]
  - Headache [Recovered/Resolved]
  - Device leakage [Unknown]
  - Pain in jaw [Recovering/Resolving]
  - Pain in extremity [Recovering/Resolving]
  - Vomiting [Unknown]
  - Purulent discharge [Unknown]
  - Catheter placement [Unknown]
  - Nausea [Unknown]
  - Diarrhoea [Not Recovered/Not Resolved]
  - Dizziness [Recovered/Resolved]
  - Visual impairment [Unknown]
  - Skin exfoliation [Recovered/Resolved]
  - Condition aggravated [Unknown]
  - Complication associated with device [Unknown]
  - Insomnia [Unknown]
